FAERS Safety Report 9448406 (Version 1)
Quarter: 2013Q3

REPORT INFORMATION
  Report Type: Spontaneous
  Country: BR (occurrence: BR)
  Receive Date: 20130808
  Receipt Date: 20130808
  Transmission Date: 20140515
  Serious: Yes (Other)
  Sender: FDA-Public Use
  Company Number: BR-PFIZER INC-2013230163

PATIENT
  Age: 46 Year
  Sex: Male
  Weight: 93 kg

DRUGS (1)
  1. FRONTAL [Suspect]
     Indication: ANXIETY
     Dosage: 0.5 MG, PER DAY (ONE TABLET DAILY)
     Route: 048
     Dates: start: 2005

REACTIONS (3)
  - Cardiac disorder [Unknown]
  - Hypertension [Unknown]
  - Blood cholesterol abnormal [Unknown]
